FAERS Safety Report 20017107 (Version 18)
Quarter: 2022Q4

REPORT INFORMATION
  Report Type: Report from Study
  Country: US (occurrence: US)
  Receive Date: 20211030
  Receipt Date: 20221212
  Transmission Date: 20230112
  Serious: Yes (Other)
  Sender: FDA-Public Use
  Company Number: US-NOVARTISTESTPH-NVSC2021US248308

PATIENT
  Sex: Female

DRUGS (1)
  1. ADAKVEO [Suspect]
     Active Substance: CRIZANLIZUMAB-TMCA
     Indication: Product used for unknown indication
     Dosage: UNK
     Route: 065

REACTIONS (19)
  - Osteonecrosis [Unknown]
  - Seizure [Unknown]
  - Drug dependence [Unknown]
  - Fine motor skill dysfunction [Unknown]
  - Pain in extremity [Not Recovered/Not Resolved]
  - Chest pain [Unknown]
  - Spinal pain [Unknown]
  - Chondropathy [Unknown]
  - Sinusitis [Unknown]
  - Tooth disorder [Unknown]
  - Gingival disorder [Unknown]
  - Headache [Unknown]
  - Pain [Not Recovered/Not Resolved]
  - Adverse event [Unknown]
  - Mobility decreased [Unknown]
  - Sickle cell disease [Unknown]
  - Spinal disorder [Unknown]
  - Arthralgia [Not Recovered/Not Resolved]
  - Back pain [Not Recovered/Not Resolved]
